FAERS Safety Report 7963474 (Version 2)
Quarter: 2018Q4

REPORT INFORMATION
  Report Type: Spontaneous
  Country: GR (occurrence: GR)
  Receive Date: 20110527
  Receipt Date: 20181224
  Transmission Date: 20190205
  Serious: Yes (Life-Threatening, Hospitalization, Other)
  Sender: FDA-Public Use
  Company Number: GR-BRISTOL-MYERS SQUIBB COMPANY-15747942

PATIENT
  Age: 28 Year
  Sex: Male

DRUGS (3)
  1. CETRIZINE [Suspect]
     Active Substance: CETIRIZINE HYDROCHLORIDE
     Indication: RASH GENERALISED
     Dosage: 10 MG, BID
     Route: 048
  2. AMOXICILLIN TRIHYDRATE [Suspect]
     Active Substance: AMOXICILLIN
     Indication: BRONCHITIS
     Dosage: 1 G, BID
     Route: 065
  3. HYDROCORTISONE SODIUM SUCCINATE [Suspect]
     Active Substance: HYDROCORTISONE SODIUM SUCCINATE
     Indication: RASH GENERALISED
     Dosage: 500 MG, UNK
     Route: 030

REACTIONS (3)
  - Hypersensitivity myocarditis [Recovering/Resolving]
  - Kounis syndrome [Recovering/Resolving]
  - Rash erythematous [Recovering/Resolving]
